FAERS Safety Report 6078706-0 (Version None)
Quarter: 2009Q1

REPORT INFORMATION
  Report Type: 
  Country: None (occurrence: None)
  Receive Date: 20090216
  Receipt Date: 20090206
  Transmission Date: 20090719
  Serious: Yes (Life-Threatening, Hospitalization)
  Sender: FDA-Public Use
  Company Number: ES-AMGEN-US261308

PATIENT
  Age: 61 Year
  Sex: Female
  Weight: 87 kg

DRUGS (3)
  1. ENBREL [Suspect]
     Indication: PSORIASIS
  2. CO-VALS [Concomitant]
     Dosage: UNKNOWN
  3. URSOCHOL [Concomitant]
     Dosage: UNKNOWN

REACTIONS (5)
  - ASTHENIA [None]
  - BLOOD BILIRUBIN INCREASED [None]
  - JAUNDICE [None]
  - PRURITUS [None]
  - TRANSAMINASES INCREASED [None]
